FAERS Safety Report 6983747-2 (Version None)
Quarter: 2010Q3

REPORT INFORMATION
  Report Type: 
  Country: None (occurrence: None)
  Receive Date: 20100914
  Receipt Date: 20081211
  Transmission Date: 20110219
  Serious: Yes (Other)
  Sender: FDA-Public Use
  Company Number: US-WYE-H07167808

PATIENT
  Age: 70 Year
  Sex: Male
  Weight: 102 kg

DRUGS (1)
  1. TYGACIL [Suspect]
     Indication: CELLULITIS
     Route: 042
     Dates: start: 20081130, end: 20081204

REACTIONS (1)
  - THROMBOCYTOPENIA [None]
